FAERS Safety Report 11079533 (Version 3)
Quarter: 2015Q3

REPORT INFORMATION
  Report Type: Spontaneous
  Country: US (occurrence: US)
  Receive Date: 20150430
  Receipt Date: 20150803
  Transmission Date: 20151125
  Serious: No
  Sender: FDA-Public Use
  Company Number: US-GLAXOSMITHKLINE-US2015057084

PATIENT
  Age: 62 Year
  Sex: Female

DRUGS (1)
  1. BECONASE AQ [Suspect]
     Active Substance: BECLOMETHASONE DIPROPIONATE MONOHYDRATE
     Indication: MULTIPLE ALLERGIES
     Dosage: 1 DF, 1D
     Route: 045
     Dates: start: 1984

REACTIONS (3)
  - Product quality issue [Unknown]
  - Nasal ulcer [Recovering/Resolving]
  - Rhinalgia [Unknown]

NARRATIVE: CASE EVENT DATE: 20150425
